FAERS Safety Report 8606807 (Version 2)
Quarter: 2013Q2

REPORT INFORMATION
  Report Type: Spontaneous
  Country: US (occurrence: US)
  Receive Date: 20120611
  Receipt Date: 20130618
  Transmission Date: 20140414
  Serious: Yes (Hospitalization, Disabling)
  Sender: FDA-Public Use
  Company Number: US-ASTRAZENECA-2012SE35928

PATIENT
  Age: 49 Year
  Sex: Female
  Weight: 61.2 kg

DRUGS (25)
  1. NEXIUM [Suspect]
     Indication: GASTROOESOPHAGEAL REFLUX DISEASE
     Route: 048
  2. NEXIUM [Suspect]
     Indication: GASTROOESOPHAGEAL REFLUX DISEASE
     Route: 048
     Dates: start: 2004, end: 2009
  3. PRILOSEC [Suspect]
     Route: 048
  4. PROTONIX [Concomitant]
     Indication: GASTROOESOPHAGEAL REFLUX DISEASE
  5. PRAVACID [Concomitant]
     Indication: GASTROOESOPHAGEAL REFLUX DISEASE
  6. ZANTAC [Concomitant]
  7. TUMS [Concomitant]
  8. ROLAIDS [Concomitant]
  9. PEPTO BISMOL [Concomitant]
  10. LORATAB [Concomitant]
     Indication: PAIN
     Dosage: 10/500 MG EVERY 10 HOURS
  11. PHENERGAN [Concomitant]
     Indication: NAUSEA
  12. DEXILANT [Concomitant]
     Indication: GASTROOESOPHAGEAL REFLUX DISEASE
  13. LIPITOR [Concomitant]
     Indication: BLOOD CHOLESTEROL
  14. FOSAMAX [Concomitant]
     Indication: OSTEOPOROSIS
  15. GABAPENTIN [Concomitant]
     Indication: ARTHRITIS
  16. BACLOFEN [Concomitant]
     Indication: MUSCLE SPASMS
  17. CALCIUM+VIT.D [Concomitant]
     Indication: OSTEOPOROSIS
  18. ASPIRIN [Concomitant]
     Indication: CARDIAC DISORDER
  19. MELOXICAM [Concomitant]
     Indication: ARTHRITIS
  20. CYMBALTA [Concomitant]
     Indication: ARTHRITIS
  21. NAPROSYN [Concomitant]
     Indication: ARTHRITIS
  22. SOMA [Concomitant]
     Indication: MUSCLE SPASMS
  23. ROBAXIN [Concomitant]
     Indication: MUSCLE SPASMS
  24. LOMOTIL [Concomitant]
     Indication: GASTROOESOPHAGEAL REFLUX DISEASE
     Dosage: 205-0.25 MG 1 A DAY
  25. CELEBREX [Concomitant]
     Indication: ARTHRITIS

REACTIONS (19)
  - Ankle fracture [Unknown]
  - Gastric disorder [Unknown]
  - Road traffic accident [Unknown]
  - Back disorder [Unknown]
  - Limb deformity [Unknown]
  - Osteoporosis [Unknown]
  - Bone density decreased [Unknown]
  - Muscle strain [Unknown]
  - Exostosis [Unknown]
  - Angina pectoris [Unknown]
  - Chronic obstructive pulmonary disease [Unknown]
  - Cataract [Unknown]
  - Bone disorder [Unknown]
  - Osteogenesis imperfecta [Unknown]
  - Bone pain [Unknown]
  - Calcium deficiency [Unknown]
  - Vitamin D deficiency [Unknown]
  - Fall [Unknown]
  - Arthritis [Unknown]
